FAERS Safety Report 19795020 (Version 1)
Quarter: 2021Q3

REPORT INFORMATION
  Report Type: Other
  Country: CN (occurrence: CN)
  Receive Date: 20210907
  Receipt Date: 20210907
  Transmission Date: 20211014
  Serious: Yes (Other)
  Sender: FDA-Public Use
  Company Number: CN-ROCHE-2901205

PATIENT

DRUGS (3)
  1. NIVOLUMAB [Suspect]
     Active Substance: NIVOLUMAB
     Indication: NEOPLASM
     Route: 065
  2. ATEZOLIZUMAB. [Suspect]
     Active Substance: ATEZOLIZUMAB
     Indication: NEOPLASM
     Route: 065
  3. CAMRELIZUMAB [Suspect]
     Active Substance: CAMRELIZUMAB
     Indication: NEOPLASM
     Route: 065

REACTIONS (27)
  - Hepatitis [Unknown]
  - Hypokalaemia [Unknown]
  - Aspartate aminotransferase increased [Unknown]
  - Rash [Unknown]
  - Herpes zoster [Unknown]
  - Pneumonia [Unknown]
  - White blood cell count decreased [Unknown]
  - Nausea [Unknown]
  - Blood creatinine increased [Unknown]
  - Vomiting [Unknown]
  - Diarrhoea [Unknown]
  - Hyperthyroidism [Unknown]
  - Arthralgia [Unknown]
  - Fatigue [Unknown]
  - Stomatitis [Unknown]
  - Pruritus [Unknown]
  - Platelet count decreased [Unknown]
  - Anaemia [Unknown]
  - Hypocalcaemia [Unknown]
  - Reactive capillary endothelial proliferation [Unknown]
  - Neutrophil count decreased [Unknown]
  - Constipation [Unknown]
  - Alopecia [Unknown]
  - Alanine aminotransferase increased [Unknown]
  - Oedema peripheral [Unknown]
  - Hypothyroidism [Unknown]
  - Decreased appetite [Unknown]
